FAERS Safety Report 11696542 (Version 1)
Quarter: 2015Q4

REPORT INFORMATION
  Report Type: Spontaneous
  Country: US (occurrence: US)
  Receive Date: 20151104
  Receipt Date: 20151104
  Transmission Date: 20160304
  Serious: No
  Sender: FDA-Public Use
  Company Number: US-ELI_LILLY_AND_COMPANY-US200602004922

PATIENT
  Age: 72 Year
  Sex: Female

DRUGS (6)
  1. ALLEGRA D /01367401/ [Concomitant]
  2. FORTEO [Suspect]
     Active Substance: TERIPARATIDE
     Dosage: 20 UG, DAILY (1/D)
     Dates: start: 20071020, end: 20071107
  3. FORTEO [Suspect]
     Active Substance: TERIPARATIDE
     Dosage: 20 UG, DAILY (1/D)
     Dates: start: 20110326
  4. FORTEO [Suspect]
     Active Substance: TERIPARATIDE
     Dosage: 20 UG, QD
  5. FORTEO [Suspect]
     Active Substance: TERIPARATIDE
     Indication: OSTEOPOROSIS
     Dosage: 20 UG, DAILY (1/D)
     Dates: start: 200512, end: 20060223
  6. FORTEO [Suspect]
     Active Substance: TERIPARATIDE
     Dosage: 20 UG, DAILY (1/D)
     Dates: start: 20090927

REACTIONS (14)
  - Nodule [Unknown]
  - Drug dose omission [Unknown]
  - Flatulence [Recovered/Resolved]
  - Urticaria [Recovered/Resolved]
  - Diarrhoea [Recovered/Resolved]
  - Rash [Unknown]
  - Urticaria [Recovered/Resolved]
  - Incorrect dose administered [Unknown]
  - Dyspnoea [Unknown]
  - Injection site pain [Not Recovered/Not Resolved]
  - Abdominal distension [Recovered/Resolved]
  - Asthma [Unknown]
  - Back pain [Recovered/Resolved]
  - Injection site haemorrhage [Unknown]

NARRATIVE: CASE EVENT DATE: 2006
